FAERS Safety Report 6056435-7 (Version None)
Quarter: 2009Q1

REPORT INFORMATION
  Report Type: 
  Country: None (occurrence: None)
  Receive Date: 20090129
  Receipt Date: 20081229
  Transmission Date: 20090719
  Serious: No
  Sender: FDA-Public Use
  Company Number: US-BAYER-200841821NA

PATIENT
  Age: 42 Year
  Sex: Female
  Weight: 64 kg

DRUGS (1)
  1. ANGELIQ [Suspect]
     Indication: PREMATURE MENOPAUSE
     Route: 048
     Dates: start: 20081110

REACTIONS (1)
  - VAGINAL HAEMORRHAGE [None]
